FAERS Safety Report 5676995-5 (Version None)
Quarter: 2008Q1

REPORT INFORMATION
  Report Type: 
  Country: None (occurrence: None)
  Receive Date: 20080324
  Receipt Date: 20080319
  Transmission Date: 20080703
  Serious: Yes (Congenital Anomaly, Other)
  Sender: FDA-Public Use
  Company Number: FR-WYE-G01274008

PATIENT
  Sex: Male

DRUGS (2)
  1. EFFEXOR [Suspect]
     Dosage: UNKNOWN
     Route: 064
     Dates: start: 20060801, end: 20070211
  2. XANAX [Suspect]
     Dosage: UNKNOWN
     Route: 064
     Dates: start: 20060801, end: 20070211

REACTIONS (5)
  - DRUG EXPOSURE DURING PREGNANCY [None]
  - DYSMORPHISM [None]
  - MICROCEPHALY [None]
  - PREMATURE BABY [None]
  - SMALL FOR DATES BABY [None]
